FAERS Safety Report 4911116-5 (Version None)
Quarter: 2006Q1

REPORT INFORMATION
  Report Type: 
  Country: None (occurrence: None)
  Receive Date: 20060209
  Receipt Date: 20060131
  Transmission Date: 20060701
  Serious: Yes (Life-Threatening, Hospitalization)
  Sender: FDA-Public Use
  Company Number: 2006-DE-00517GD

PATIENT
  Age: 51 Year
  Sex: Male

DRUGS (6)
  1. CLARITHROMYCIN [Suspect]
     Indication: LUNG INFECTION PSEUDOMONAL
     Dosage: PO
     Route: 048
  2. BECLOMETHASONE DIPROPIONATE [Suspect]
     Indication: CHRONIC OBSTRUCTIVE PULMONARY DISEASE
     Dosage: 400 MCG (, TWICE DAILY), IH
     Route: 055
  3. PREDNISOLONE [Suspect]
     Indication: LUNG INFECTION PSEUDOMONAL
     Dosage: 40 MG (ONCE), PO
     Route: 048
  4. CEFTRIAXONE [Suspect]
     Indication: LUNG INFECTION PSEUDOMONAL
     Dosage: IV
     Route: 042
  5. SALBUTAMOL (SALBUTAMOL) (SALBUTAMOL SULPHATE) [Concomitant]
  6. AMOXICILLIN [Concomitant]

REACTIONS (8)
  - ABSCESS [None]
  - GENERAL PHYSICAL HEALTH DETERIORATION [None]
  - HYPOXIA [None]
  - LUNG CONSOLIDATION [None]
  - PSEUDOMONAL SEPSIS [None]
  - RASH VESICULAR [None]
  - SUBCUTANEOUS NODULE [None]
  - TACHYPNOEA [None]
